FAERS Safety Report 21149035 (Version 1)
Quarter: 2022Q3

REPORT INFORMATION
  Report Type: Spontaneous
  Country: CN (occurrence: CN)
  Receive Date: 20220729
  Receipt Date: 20220729
  Transmission Date: 20221027
  Serious: Yes (Other)
  Sender: FDA-Public Use
  Company Number: CN-AstraZeneca-2022A237284

PATIENT
  Age: 43 Year
  Sex: Male

DRUGS (2)
  1. BUDESONIDE [Suspect]
     Active Substance: BUDESONIDE
     Indication: Product used for unknown indication
     Route: 045
  2. SYMBICORT [Suspect]
     Active Substance: BUDESONIDE\FORMOTEROL FUMARATE DIHYDRATE
     Indication: Asthma
     Dosage: DOSE: UNKNOWN UNKNOWN
     Route: 055

REACTIONS (8)
  - Myocardial injury [Unknown]
  - Cardiac disorder [Unknown]
  - Arrhythmia [Unknown]
  - Ventricular extrasystoles [Unknown]
  - Drug dependence [Unknown]
  - Insomnia [Unknown]
  - Electrocardiogram ST segment abnormal [Unknown]
  - Asthma [Unknown]
